FAERS Safety Report 5130643-1 (Version None)
Quarter: 2006Q4

REPORT INFORMATION
  Report Type: 
  Country: None (occurrence: None)
  Receive Date: 20061017
  Receipt Date: 20061017
  Transmission Date: 20070319
  Serious: Yes (Hospitalization)
  Sender: FDA-Public Use
  Company Number: None

PATIENT
  Age: 65 Year
  Sex: Male
  Weight: 48.1 kg

DRUGS (1)
  1. AMPHOTERICIN B [Suspect]
     Indication: ASPERGILLOSIS
     Dosage: 235MG IV DAILY
     Route: 042
     Dates: start: 20060613

REACTIONS (5)
  - CHILLS [None]
  - DRUG DOSE OMISSION [None]
  - INFUSION RELATED REACTION [None]
  - PREMEDICATION [None]
  - TACHYCARDIA [None]
